FAERS Safety Report 18990995 (Version 1)
Quarter: 2021Q1

REPORT INFORMATION
  Report Type: Spontaneous
  Country: UA (occurrence: UA)
  Receive Date: 20210310
  Receipt Date: 20210310
  Transmission Date: 20210420
  Serious: Yes (Other)
  Sender: FDA-Public Use
  Company Number: UA-BAUSCH-BL-2021-007976

PATIENT
  Age: 43 Year

DRUGS (2)
  1. ALFA NORMIX [Suspect]
     Active Substance: RIFAXIMIN
     Indication: IRRITABLE BOWEL SYNDROME
     Route: 048
  2. ALFA NORMIX [Suspect]
     Active Substance: RIFAXIMIN
     Indication: INTENTIONAL PRODUCT USE ISSUE

REACTIONS (2)
  - Diarrhoea [Recovering/Resolving]
  - Intentional product use issue [Recovered/Resolved]
